FAERS Safety Report 7379270-6 (Version None)
Quarter: 2011Q1

REPORT INFORMATION
  Report Type: 
  Country: None (occurrence: None)
  Receive Date: 20110328
  Receipt Date: 20110221
  Transmission Date: 20110831
  Serious: Yes (Hospitalization)
  Sender: FDA-Public Use
  Company Number: DE-AMGEN-DEUNI2010003314

PATIENT
  Age: 16 Year
  Sex: Male

DRUGS (12)
  1. LEVOTHYROXINE SODIUM [Concomitant]
  2. COLIFOAM [Concomitant]
  3. DARBEPOETIN ALFA [Suspect]
     Indication: RENAL FAILURE CHRONIC
     Dosage: UNK UNK, QWK
     Route: 042
     Dates: start: 20090827
  4. CALCIUM ACETATE [Concomitant]
     Dosage: 2 MG, UNK
  5. AMLODIPINE [Concomitant]
  6. LASIX [Concomitant]
     Dosage: 30 MG, UNK
  7. BICARBONATE [Concomitant]
     Dosage: 1 G, TID
  8. GENATROPINE [Concomitant]
     Dosage: 2 MG, UNK
  9. METOPROLOL SUCCINATE [Concomitant]
     Dosage: 475 MG, UNK
  10. MAGNESIUM [Concomitant]
  11. CALCIUM [Concomitant]
  12. PREDNISOLONE [Concomitant]
     Dosage: 5 MG, UNK

REACTIONS (2)
  - RENAL FAILURE [None]
  - BLOOD CREATINE [None]
